FAERS Safety Report 4455400-0 (Version None)
Quarter: 2004Q3

REPORT INFORMATION
  Report Type: 
  Country: None (occurrence: None)
  Receive Date: 20040830
  Receipt Date: 20040516
  Transmission Date: 20050211
  Serious: No
  Sender: FDA-Public Use
  Company Number: 204213

PATIENT
  Age: 61 Year
  Sex: Male
  Weight: 69.8 kg

DRUGS (5)
  1. XOLAIR [Suspect]
     Indication: ASTHMA
     Dosage: 150 MG,Q2W,SUBCUTANEOUS
     Route: 058
     Dates: start: 20030701
  2. ADVAIR (SALMETEROL XINAFOATE, FLUTICASONE PROPIONATE) [Concomitant]
  3. THEOPHYLLINE [Concomitant]
  4. ALBUTEROL INHALER (ALBUTEROL, ALBUTEROL SULFATE) [Concomitant]
  5. NEXIUM [Concomitant]

REACTIONS (1)
  - DRUG INEFFECTIVE [None]
